FAERS Safety Report 4962301-8 (Version None)
Quarter: 2006Q2

REPORT INFORMATION
  Report Type: 
  Country: None (occurrence: None)
  Receive Date: 20060404
  Receipt Date: 20051014
  Transmission Date: 20061013
  Serious: No
  Sender: FDA-Public Use
  Company Number: US-BRISTOL-MYERS SQUIBB COMPANY-13146840

PATIENT

DRUGS (1)
  1. HYDREA [Suspect]

REACTIONS (1)
  - BLOOD BILIRUBIN INCREASED [None]
